FAERS Safety Report 5531767-7 (Version None)
Quarter: 2007Q4

REPORT INFORMATION
  Report Type: 
  Country: None (occurrence: None)
  Receive Date: 20071203
  Receipt Date: 20071122
  Transmission Date: 20080405
  Serious: Yes (Hospitalization)
  Sender: FDA-Public Use
  Company Number: JP-ASTRAZENECA-2007AP06991

PATIENT
  Age: 74 Year
  Sex: Male

DRUGS (4)
  1. CASODEX [Suspect]
     Indication: PROSTATE CANCER
     Route: 048
     Dates: start: 20070221, end: 20071004
  2. LENDORMIN [Concomitant]
     Route: 048
  3. LEUPROLIDE ACETATE [Concomitant]
     Indication: PROSTATE CANCER
     Route: 058
     Dates: start: 20070221, end: 20070328
  4. LEUPLIN SR [Concomitant]
     Indication: PROSTATE CANCER
     Route: 058
     Dates: start: 20070425

REACTIONS (2)
  - HAEMORRHAGIC DIATHESIS [None]
  - MALAISE [None]
